FAERS Safety Report 11848423 (Version 4)
Quarter: 2016Q1

REPORT INFORMATION
  Report Type: Spontaneous
  Country: DE (occurrence: DE)
  Receive Date: 20151218
  Receipt Date: 20160309
  Transmission Date: 20160526
  Serious: Yes (Other)
  Sender: FDA-Public Use
  Company Number: DE-ROCHE-1679061

PATIENT
  Sex: Female
  Weight: 85 kg

DRUGS (2)
  1. XOLAIR [Suspect]
     Active Substance: OMALIZUMAB
     Indication: URTICARIA
     Route: 058
     Dates: start: 20150924
  2. XOLAIR [Suspect]
     Active Substance: OMALIZUMAB
     Route: 058
     Dates: start: 20151022

REACTIONS (1)
  - Lupus-like syndrome [Recovered/Resolved]
